FAERS Safety Report 16020204 (Version 1)
Quarter: 2019Q1

REPORT INFORMATION
  Report Type: Spontaneous
  Country: US (occurrence: US)
  Receive Date: 20190228
  Receipt Date: 20190228
  Transmission Date: 20190418
  Serious: No
  Sender: FDA-Public Use
  Company Number: US-JNJFOC-20190135515

PATIENT
  Age: 88 Year
  Sex: Female
  Weight: 64.86 kg

DRUGS (2)
  1. IMODIUM MULTI-SYMPTOM RELIEF [Suspect]
     Active Substance: DIMETHICONE\LOPERAMIDE HYDROCHLORIDE
     Indication: DIARRHOEA
     Dosage: 2 PILLS FIRST TIME, THEN 1 PILL SECOND TIME TWICE
     Route: 048
     Dates: start: 20190124, end: 20190124
  2. IMODIUM MULTI-SYMPTOM RELIEF [Suspect]
     Active Substance: DIMETHICONE\LOPERAMIDE HYDROCHLORIDE
     Route: 048

REACTIONS (5)
  - Expired product administered [Unknown]
  - Gastrointestinal sounds abnormal [Unknown]
  - Product complaint [Unknown]
  - Flatulence [Unknown]
  - Defaecation urgency [Unknown]

NARRATIVE: CASE EVENT DATE: 201901
